FAERS Safety Report 5408030-8 (Version None)
Quarter: 2007Q3

REPORT INFORMATION
  Report Type: 
  Country: None (occurrence: None)
  Receive Date: 20070808
  Receipt Date: 20070803
  Transmission Date: 20080115
  Serious: Yes (Other)
  Sender: FDA-Public Use
  Company Number: PHEH2007US03296

PATIENT
  Age: 43 Year
  Sex: Female

DRUGS (22)
  1. TRANSFUSIONS [Concomitant]
  2. EXJADE [Suspect]
     Indication: IRON OVERLOAD
     Dosage: 1500 MG, QD
     Route: 048
     Dates: start: 20060301, end: 20061201
  3. EXJADE [Suspect]
     Dosage: 2500 MG, QD
     Route: 048
     Dates: start: 20061201, end: 20070301
  4. EXJADE [Suspect]
     Dosage: 2500 MG, QD
     Route: 048
     Dates: start: 20070401
  5. LOVENOX [Concomitant]
     Dosage: 150 MG, UNK
     Dates: start: 20070507
  6. LISINOPRIL [Concomitant]
     Dosage: 10 MG, QD
     Route: 048
     Dates: start: 20060903
  7. AMITRIPTYLINE HCL [Concomitant]
     Dosage: 25 MG, UNK
     Dates: start: 20070507
  8. SIMVASTATIN [Concomitant]
     Dosage: 20 MG, QD
     Route: 048
     Dates: start: 20070507
  9. ESTRADERM [Concomitant]
     Dosage: 0.05 MG, QD
     Route: 062
     Dates: start: 20010727
  10. FOLIC ACID [Concomitant]
     Dosage: 1 MG, QD
     Route: 048
     Dates: start: 20070507
  11. ARTIFICIAL TEARS [Concomitant]
     Dosage: UNK, QID
     Route: 047
     Dates: start: 20060202
  12. PROMETHAZINE [Concomitant]
     Dosage: 25 MG, QD
     Route: 048
     Dates: start: 20070507
  13. BENADRYL ^PARKE DAVIS^ /ISR/ [Concomitant]
     Indication: PRURITUS
     Dosage: 25 MG, PRN
     Route: 048
     Dates: start: 20070507
  14. METHADOSE [Concomitant]
     Indication: PAIN
     Dosage: 40 MG, PRN
     Dates: start: 20060612
  15. CODEINE SUL TAB [Concomitant]
     Indication: PAIN
     Dosage: 30 MG, PRN
     Route: 048
     Dates: start: 20060423
  16. FIORICET [Concomitant]
     Indication: HEADACHE
     Dosage: UNK, PRN
     Route: 048
     Dates: start: 20061021
  17. ZANTAC 150 [Concomitant]
     Dosage: 150 MG, QHS
     Route: 048
     Dates: start: 20070108
  18. FLONASE [Concomitant]
     Dosage: 50 UG, QD
     Route: 045
     Dates: start: 20070108
  19. DILANTIN [Concomitant]
     Dosage: 300 MG, TID
     Route: 048
     Dates: start: 20070609
  20. VITAMIN D [Concomitant]
     Dosage: 5000 U, QW
     Route: 048
     Dates: start: 20070523
  21. HYDREA [Concomitant]
     Dosage: 1500 MG, QHS
     Dates: start: 20070609
  22. AZITHROMYCIN [Concomitant]
     Dosage: 250 MG, QD
     Route: 048
     Dates: start: 20070615, end: 20070619

REACTIONS (18)
  - ALANINE AMINOTRANSFERASE INCREASED [None]
  - ASPARTATE AMINOTRANSFERASE INCREASED [None]
  - BLOOD ALKALINE PHOSPHATASE INCREASED [None]
  - BLOOD CHLORIDE INCREASED [None]
  - BLOOD CREATININE INCREASED [None]
  - BLOOD GLUCOSE INCREASED [None]
  - BLOOD PHOSPHORUS INCREASED [None]
  - BLOOD THYROID STIMULATING HORMONE INCREASED [None]
  - BLOOD UREA INCREASED [None]
  - BLOOD URIC ACID INCREASED [None]
  - DRUG LEVEL BELOW THERAPEUTIC [None]
  - GAMMA-GLUTAMYLTRANSFERASE INCREASED [None]
  - HAEMATOCRIT DECREASED [None]
  - PROTEIN TOTAL INCREASED [None]
  - RED BLOOD CELL COUNT DECREASED [None]
  - SERUM FERRITIN INCREASED [None]
  - TREATMENT NONCOMPLIANCE [None]
  - WHITE BLOOD CELL COUNT DECREASED [None]
